FAERS Safety Report 25523431 (Version 1)
Quarter: 2025Q3

REPORT INFORMATION
  Report Type: Spontaneous
  Country: US (occurrence: US)
  Receive Date: 20250707
  Receipt Date: 20250707
  Transmission Date: 20251020
  Serious: Yes (Hospitalization, Disabling, Other)
  Sender: CIPLA
  Company Number: US-MLMSERVICE-20250616-PI545564-00326-1

PATIENT

DRUGS (1)
  1. VALACYCLOVIR [Suspect]
     Active Substance: VALACYCLOVIR HYDROCHLORIDE
     Indication: Herpes zoster
     Dosage: 1000 GRAM, TID
     Route: 065

REACTIONS (1)
  - Neurotoxicity [Recovering/Resolving]
